FAERS Safety Report 9879381 (Version 9)
Quarter: 2017Q4

REPORT INFORMATION
  Report Type: Report from Study
  Country: JP (occurrence: JP)
  Receive Date: 20140206
  Receipt Date: 20171031
  Transmission Date: 20180321
  Serious: Yes (Death, Hospitalization, Other)
  Sender: FDA-Public Use
  Company Number: JP-BRISTOL-MYERS SQUIBB COMPANY-20152781

PATIENT
  Age: 69 Year
  Sex: Male

DRUGS (5)
  1. CETUXIMAB. [Suspect]
     Active Substance: CETUXIMAB
     Indication: HYPOPHARYNGEAL CANCER
     Dosage: 400 MG/M2, CYCLICAL
     Route: 041
     Dates: start: 20130926
  2. CISPLATIN. [Suspect]
     Active Substance: CISPLATIN
     Indication: HYPOPHARYNGEAL CANCER
     Dosage: 75 MG/M2, DAILY
     Route: 041
     Dates: start: 20130926
  3. CDDP [Suspect]
     Active Substance: CISPLATIN
     Indication: HYPOPHARYNGEAL CANCER
     Dosage: 75 MG/M2, CYCLICAL
     Route: 041
     Dates: start: 20130926, end: 20130926
  4. DOCETAXEL. [Concomitant]
     Active Substance: DOCETAXEL
     Indication: HYPOPHARYNGEAL CANCER
     Dosage: C2D1:17OCT13  C3D1:07NOV13  117MG*1/3WK-26SE13 TO 22NV13
     Route: 041
     Dates: start: 20130926, end: 20131122
  5. DEXAMETHASONE SODIUM PHOSPHATE. [Suspect]
     Active Substance: DEXAMETHASONE SODIUM PHOSPHATE
     Indication: PRODUCT USED FOR UNKNOWN INDICATION
     Dosage: 6.6 DF, WEEKLY (1/W)
     Route: 042
     Dates: start: 20130926, end: 20140114

REACTIONS (7)
  - Septic shock [Fatal]
  - Renal impairment [Recovered/Resolved]
  - Blood magnesium decreased [Not Recovered/Not Resolved]
  - Cardiac arrest [Fatal]
  - Infectious pleural effusion [Fatal]
  - Mucosal inflammation [Not Recovered/Not Resolved]
  - Dermatitis [Not Recovered/Not Resolved]

NARRATIVE: CASE EVENT DATE: 2013
